FAERS Safety Report 10034194 (Version 1)
Quarter: 2014Q1

REPORT INFORMATION
  Report Type: Spontaneous
  Country: US (occurrence: US)
  Receive Date: 20140325
  Receipt Date: 20140325
  Transmission Date: 20141002
  Serious: No
  Sender: FDA-Public Use
  Company Number: US-009507513-1403USA011417

PATIENT
  Sex: Female

DRUGS (1)
  1. LOSARTAN POTASSIUM [Suspect]
     Dosage: UNK
     Route: 048

REACTIONS (3)
  - Burning sensation [Unknown]
  - Tremor [Unknown]
  - Pruritus [Unknown]
